FAERS Safety Report 7164238-5 (Version None)
Quarter: 2010Q4

REPORT INFORMATION
  Report Type: 
  Country: None (occurrence: None)
  Receive Date: 20101123
  Receipt Date: 20100825
  Transmission Date: 20110411
  Serious: No
  Sender: FDA-Public Use
  Company Number: 8048717

PATIENT
  Sex: Male

DRUGS (1)
  1. CERTOLIZUMAB PEGOL [Suspect]
     Indication: CROHN'S DISEASE
     Dosage: 400 MG 1X/4 WEEKS SUBCUTANEOUS
     Route: 058
     Dates: start: 20080906

REACTIONS (11)
  - ABNORMAL DREAMS [None]
  - ANAEMIA [None]
  - BLOOD IRON DECREASED [None]
  - CONSTIPATION [None]
  - FATIGUE [None]
  - HAEMATOCHEZIA [None]
  - MUSCLE SPASMS [None]
  - RECTAL ABSCESS [None]
  - SOMNOLENCE [None]
  - SWELLING FACE [None]
  - WEIGHT INCREASED [None]
